FAERS Safety Report 6786181-3 (Version None)
Quarter: 2010Q2

REPORT INFORMATION
  Report Type: 
  Country: None (occurrence: None)
  Receive Date: 20100622
  Receipt Date: 20100622
  Transmission Date: 20101027
  Serious: Yes (Life-Threatening)
  Sender: FDA-Public Use
  Company Number: None

PATIENT
  Age: 63 Year
  Sex: Female
  Weight: 54.4316 kg

DRUGS (2)
  1. LAMICTAL [Suspect]
     Indication: CONVULSION
     Dosage: 100 MG TWICE DAILY PO
     Route: 048
     Dates: start: 20070101, end: 20100615
  2. LAMICTAL [Suspect]
     Indication: STRESS
     Dosage: 100 MG TWICE DAILY PO
     Route: 048
     Dates: start: 20070101, end: 20100615

REACTIONS (14)
  - BLOOD PRESSURE DECREASED [None]
  - DRY MOUTH [None]
  - DRY SKIN [None]
  - EYES SUNKEN [None]
  - FATIGUE [None]
  - HYPERTENSION [None]
  - INCREASED TENDENCY TO BRUISE [None]
  - OROPHARYNGEAL PAIN [None]
  - PRESYNCOPE [None]
  - RASH ERYTHEMATOUS [None]
  - RASH PRURITIC [None]
  - SCAR [None]
  - SKIN EXFOLIATION [None]
  - VITAMIN D DEFICIENCY [None]
